FAERS Safety Report 23606765 (Version 2)
Quarter: 2024Q1

REPORT INFORMATION
  Report Type: Spontaneous
  Country: BR (occurrence: BR)
  Receive Date: 20240307
  Receipt Date: 20240313
  Transmission Date: 20240409
  Serious: Yes (Other)
  Sender: FDA-Public Use
  Company Number: BR-TAKEDA-2024TUS020912

PATIENT
  Sex: Female
  Weight: 78 kg

DRUGS (5)
  1. LISDEXAMFETAMINE DIMESYLATE [Suspect]
     Active Substance: LISDEXAMFETAMINE DIMESYLATE
     Indication: Attention deficit hyperactivity disorder
     Dosage: 1 DOSAGE FORM, QD
     Route: 065
     Dates: start: 2022
  2. DULOXETINE HYDROCHLORIDE [Concomitant]
     Active Substance: DULOXETINE HYDROCHLORIDE
     Dosage: 60 MILLIGRAM
     Route: 065
  3. Bup xl [Concomitant]
     Dosage: 300 MILLIGRAM
     Route: 065
  4. RIVOTRIL [Concomitant]
     Active Substance: CLONAZEPAM
     Dosage: 0.5 MILLIGRAM
     Route: 065
  5. PURAN [Concomitant]
     Active Substance: LEVOTHYROXINE SODIUM
     Dosage: 60 MILLIGRAM
     Route: 065

REACTIONS (6)
  - Autoimmune thyroiditis [Unknown]
  - Fibromyalgia [Unknown]
  - Depression [Unknown]
  - Product physical issue [Unknown]
  - Product use issue [Unknown]
  - Prescription drug used without a prescription [Unknown]
